FAERS Safety Report 20772836 (Version 1)
Quarter: 2022Q2

REPORT INFORMATION
  Report Type: Report from Study
  Country: CA (occurrence: CA)
  Receive Date: 20220502
  Receipt Date: 20220502
  Transmission Date: 20220720
  Serious: Yes (Other)
  Sender: FDA-Public Use
  Company Number: CA-BRISTOL-MYERS SQUIBB COMPANY-2022-024874

PATIENT
  Age: 72 Year
  Sex: Male

DRUGS (1)
  1. POMALIDOMIDE [Suspect]
     Active Substance: POMALIDOMIDE
     Indication: Amyloidosis
     Dosage: 21 CAPS/28 DAYS
     Route: 048
     Dates: start: 20191114, end: 20200430

REACTIONS (3)
  - Amyloidosis [Unknown]
  - Condition aggravated [Unknown]
  - Intentional product use issue [Unknown]
